FAERS Safety Report 8152238-8 (Version None)
Quarter: 2012Q1

REPORT INFORMATION
  Report Type: 
  Country: None (occurrence: None)
  Receive Date: 20120215
  Receipt Date: 20120215
  Transmission Date: 20120608
  Serious: Yes (Life-Threatening, Hospitalization)
  Sender: FDA-Public Use
  Company Number: None

PATIENT
  Age: 80 Year
  Sex: Male
  Weight: 90.9 kg

DRUGS (1)
  1. WARFARIN SODIUM [Suspect]
     Indication: ATRIAL FIBRILLATION
     Dosage: 27.5 MG EVERY DAY PO
     Route: 048
     Dates: start: 20090226, end: 20120123

REACTIONS (5)
  - TOOTH ABSCESS [None]
  - MUSCULAR WEAKNESS [None]
  - FALL [None]
  - IMPAIRED SELF-CARE [None]
  - EXTRADURAL HAEMATOMA [None]
